FAERS Safety Report 8869885 (Version 1)
Quarter: 2012Q4

REPORT INFORMATION
  Report Type: Spontaneous
  Country: US (occurrence: None)
  Receive Date: 20121025
  Receipt Date: 20121025
  Transmission Date: 20130627
  Serious: Yes (Other)
  Sender: FDA-Public Use
  Company Number: None

PATIENT
  Age: 66 Year
  Sex: Female
  Weight: 96.98 kg

DRUGS (5)
  1. AMOXICILLIN [Suspect]
     Indication: ACUTE SINUSITIS
     Dosage: 500 mg TIC x 14d oral
     Route: 048
     Dates: start: 20120924, end: 20121007
  2. FLUCONAZOLE [Suspect]
     Indication: VAGINAL YEAST INFECTION
     Dosage: 150 mg once oral
     Route: 048
     Dates: start: 20120924
  3. LOVASTATIN [Concomitant]
  4. LOSARTAN [Concomitant]
  5. PANTOPRAZOLE [Concomitant]

REACTIONS (1)
  - Hepatitis acute [None]
